FAERS Safety Report 15500602 (Version 3)
Quarter: 2019Q1

REPORT INFORMATION
  Report Type: Spontaneous
  Country: US (occurrence: US)
  Receive Date: 20181015
  Receipt Date: 20190319
  Transmission Date: 20190417
  Serious: Yes (Hospitalization)
  Sender: FDA-Public Use
  Company Number: US-BRISTOL-MYERS SQUIBB COMPANY-BMS-2018-092833

PATIENT
  Age: 30 Year
  Sex: Male

DRUGS (3)
  1. MOTANEX [Concomitant]
     Indication: PAIN
     Dosage: 800 MILLIGRAM, PRN
     Route: 048
     Dates: start: 20170128
  2. YERVOY [Suspect]
     Active Substance: IPILIMUMAB
     Indication: MALIGNANT MELANOMA
     Dosage: 10 MILLIGRAM/KILOGRAM, Q3WK, 865 MG OF 3 MONTHS
     Route: 042
     Dates: start: 20151203, end: 20180626
  3. DIPHENHYDRAMINE. [Concomitant]
     Active Substance: DIPHENHYDRAMINE
     Indication: PRURITUS
     Dosage: 25 MILLIGRAM
     Route: 048
     Dates: start: 20180108

REACTIONS (4)
  - Eye swelling [Recovered/Resolved]
  - Face oedema [Recovered/Resolved]
  - Erythema [Recovered/Resolved]
  - Prescribed overdose [Unknown]

NARRATIVE: CASE EVENT DATE: 20180830
